FAERS Safety Report 23410700 (Version 1)
Quarter: 2024Q1

REPORT INFORMATION
  Report Type: Report from Study
  Country: US (occurrence: US)
  Receive Date: 20240117
  Receipt Date: 20240117
  Transmission Date: 20240410
  Serious: Yes (Other)
  Sender: FDA-Public Use
  Company Number: US-CLOVIS ONCOLOGY-CLO-2021-001362

PATIENT
  Sex: Female

DRUGS (3)
  1. RUBRACA [Suspect]
     Active Substance: RUCAPARIB CAMSYLATE
     Indication: Ovarian cancer
     Dosage: 300 MILLIGRAM, QD
     Route: 048
     Dates: start: 20200130
  2. RUBRACA [Suspect]
     Active Substance: RUCAPARIB CAMSYLATE
     Dosage: 300 MILLIGRAM, QD
     Route: 048
     Dates: start: 20200130, end: 20220213
  3. RUBRACA [Suspect]
     Active Substance: RUCAPARIB CAMSYLATE
     Dosage: 300 MG DAILY
     Route: 048
     Dates: start: 20200130

REACTIONS (7)
  - Radiotherapy [Unknown]
  - Respiratory tract infection [Not Recovered/Not Resolved]
  - Carbohydrate antigen 125 increased [Recovered/Resolved]
  - Constipation [Recovering/Resolving]
  - White blood cell count decreased [Recovering/Resolving]
  - Full blood count abnormal [Not Recovered/Not Resolved]
  - Fatigue [Unknown]
